FAERS Safety Report 10844227 (Version 4)
Quarter: 2015Q1

REPORT INFORMATION
  Report Type: Spontaneous
  Country: DE (occurrence: DE)
  Receive Date: 20150220
  Receipt Date: 20150319
  Transmission Date: 20150721
  Serious: Yes (Other)
  Sender: FDA-Public Use
  Company Number: DE-UCBSA-2014002443

PATIENT
  Age: 59 Year
  Sex: Female
  Weight: 75 kg

DRUGS (4)
  1. NALOXONE [Concomitant]
     Active Substance: NALOXONE
     Indication: PAIN
     Dosage: 50/4 MG, ONCE DAILY (QD)
     Route: 048
  2. PANTOPRAZOLE [Concomitant]
     Active Substance: PANTOPRAZOLE SODIUM
     Indication: ABDOMINAL DISCOMFORT
     Dosage: 20 MG, ONCE DAILY (QD)
     Route: 048
  3. NEUPRO [Suspect]
     Active Substance: ROTIGOTINE
     Indication: RESTLESS LEGS SYNDROME
     Dosage: 3 MG, WEEKLY (QW)
     Route: 062
     Dates: start: 201212, end: 20140621
  4. BIPRETERAX [Concomitant]
     Active Substance: INDAPAMIDE\PERINDOPRIL
     Indication: BLOOD PRESSURE
     Dosage: 5/1.25 MG, ONCE DAILY (QD)
     Route: 048

REACTIONS (7)
  - Skin exfoliation [Recovered/Resolved with Sequelae]
  - Drug administration error [Unknown]
  - Skin disorder [Not Recovered/Not Resolved]
  - Application site vesicles [Recovered/Resolved with Sequelae]
  - Skin erosion [Recovering/Resolving]
  - Application site irritation [Unknown]
  - Skin ulcer [Unknown]

NARRATIVE: CASE EVENT DATE: 201212
